FAERS Safety Report 8494001-4 (Version None)
Quarter: 2012Q3

REPORT INFORMATION
  Report Type: 
  Country: None (occurrence: None)
  Receive Date: 20120709
  Receipt Date: 20120629
  Transmission Date: 20120928
  Serious: Yes (Hospitalization)
  Sender: FDA-Public Use
  Company Number: US-BIOGENIDEC-2004BI002405

PATIENT
  Age: 41 Year
  Sex: Female
  Weight: 63 kg

DRUGS (4)
  1. AVONEX [Suspect]
     Route: 030
     Dates: start: 20040501, end: 20041101
  2. AVONEX [Suspect]
     Route: 030
     Dates: start: 20041101
  3. DEXAMETHASONE [Concomitant]
     Dates: start: 20040701
  4. AVONEX [Suspect]
     Indication: MULTIPLE SCLEROSIS
     Route: 030
     Dates: start: 20000801, end: 20030601

REACTIONS (4)
  - ARTERIOSPASM CORONARY [None]
  - MYOCARDIAL INFARCTION [None]
  - DEPRESSION [None]
  - MULTIPLE SCLEROSIS RELAPSE [None]
